FAERS Safety Report 23077377 (Version 1)
Quarter: 2023Q4

REPORT INFORMATION
  Report Type: Spontaneous
  Country: US (occurrence: US)
  Receive Date: 20231018
  Receipt Date: 20231018
  Transmission Date: 20240110
  Serious: Yes (Disabling, Other)
  Sender: FDA-Public Use
  Company Number: US-ORGANON-O2310USA001511

PATIENT
  Sex: Male

DRUGS (1)
  1. PROPECIA [Suspect]
     Active Substance: FINASTERIDE
     Indication: Alopecia
     Dosage: 1 MG BY MOUTH DAILY (FORMULATION REPORTED AS TABLET)
     Route: 048

REACTIONS (5)
  - Suicidal ideation [Recovered/Resolved]
  - Erectile dysfunction [Not Recovered/Not Resolved]
  - Brain fog [Not Recovered/Not Resolved]
  - Bradyphrenia [Not Recovered/Not Resolved]
  - Loss of libido [Not Recovered/Not Resolved]
